FAERS Safety Report 6705730-4 (Version None)
Quarter: 2010Q2

REPORT INFORMATION
  Report Type: 
  Country: None (occurrence: None)
  Receive Date: 20100503
  Receipt Date: 20100420
  Transmission Date: 20101027
  Serious: Yes (Hospitalization, Other)
  Sender: FDA-Public Use
  Company Number: US-BAYER-201017070NA

PATIENT
  Age: 13 Year
  Sex: Female
  Weight: 73 kg

DRUGS (16)
  1. YAZ [Suspect]
     Indication: ACNE
     Route: 048
  2. YASMIN [Suspect]
     Indication: ACNE
     Route: 048
     Dates: start: 20070801
  3. OCELLA [Suspect]
     Indication: ACNE
     Route: 048
     Dates: start: 20090201, end: 20090501
  4. NSAID'S [Concomitant]
     Indication: MUSCLE SPASMS
  5. CEPHALEXIN [Concomitant]
  6. AZITHROMYCIN [Concomitant]
  7. AMOXICILLIN [Concomitant]
     Indication: NASOPHARYNGITIS
  8. NASONEX [Concomitant]
  9. ACCUTANE [Concomitant]
  10. MEDROXYPROGESTERONE [Concomitant]
  11. BREVOXYL [Concomitant]
     Indication: ACNE
  12. TRIAMCINOLONE [Concomitant]
  13. CLARAVIS [Concomitant]
  14. FLUCONAZOLE [Concomitant]
  15. CARMOL-20 [Concomitant]
  16. SALICYLIC ACID [Concomitant]

REACTIONS (3)
  - ACNE [None]
  - DEEP VEIN THROMBOSIS [None]
  - MENSTRUAL DISORDER [None]
